FAERS Safety Report 4662186-3 (Version None)
Quarter: 2005Q2

REPORT INFORMATION
  Report Type: 
  Country: None (occurrence: None)
  Receive Date: 20050516
  Receipt Date: 20050331
  Transmission Date: 20051028
  Serious: Yes (Death)
  Sender: FDA-Public Use
  Company Number: US-BRISTOL-MYERS SQUIBB COMPANY-12917472

PATIENT
  Age: 65 Year
  Sex: Male

DRUGS (3)
  1. MEGACE [Suspect]
     Indication: DECREASED APPETITE
     Route: 048
     Dates: start: 20041216, end: 20050213
  2. RADIOTHERAPY [Concomitant]
     Indication: NEOPLASM MALIGNANT
  3. CHEMOTHERAPY [Concomitant]
     Indication: NEOPLASM MALIGNANT

REACTIONS (1)
  - MALIGNANT NEOPLASM PROGRESSION [None]
